FAERS Safety Report 19901731 (Version 4)
Quarter: 2022Q1

REPORT INFORMATION
  Report Type: Report from Study
  Country: JP (occurrence: JP)
  Receive Date: 20210929
  Receipt Date: 20220303
  Transmission Date: 20220423
  Serious: Yes (Other)
  Sender: FDA-Public Use
  Company Number: JP-TAKEDA-2021TJP095978

PATIENT
  Sex: Female

DRUGS (3)
  1. ICATIBANT [Suspect]
     Active Substance: ICATIBANT ACETATE
     Indication: Hereditary angioedema
     Dosage: 30 MILLIGRAM, PRN
     Route: 058
     Dates: start: 202010
  2. ICATIBANT [Suspect]
     Active Substance: ICATIBANT ACETATE
     Indication: Hereditary angioedema
     Dosage: 30 MILLIGRAM, PRN
     Route: 058
     Dates: start: 202010
  3. TRANSAMIN [Concomitant]
     Active Substance: TRANEXAMIC ACID
     Route: 065

REACTIONS (26)
  - Laryngeal oedema [Unknown]
  - Suicidal ideation [Unknown]
  - Aphonia [Unknown]
  - Localised oedema [Unknown]
  - Lip oedema [Unknown]
  - Abdominal pain [Unknown]
  - Throat irritation [Unknown]
  - Injection site pain [Unknown]
  - Injection site haemorrhage [Unknown]
  - Injection site extravasation [Unknown]
  - Hypersomnia [Unknown]
  - Back pain [Unknown]
  - Fatigue [Unknown]
  - Musculoskeletal pain [Unknown]
  - Pyrexia [Unknown]
  - Physical deconditioning [Unknown]
  - Decreased immune responsiveness [Unknown]
  - Elderly [Unknown]
  - Depressive symptom [Unknown]
  - Abdominal pain upper [Unknown]
  - Manic symptom [Unknown]
  - Musculoskeletal pain [Unknown]
  - Vasomotor rhinitis [Unknown]
  - Hereditary angioedema [Unknown]
  - Memory impairment [Unknown]
  - Pain of skin [Unknown]

NARRATIVE: CASE EVENT DATE: 20200101
